FAERS Safety Report 4300445-4 (Version None)
Quarter: 2004Q1

REPORT INFORMATION
  Report Type: 
  Country: None (occurrence: None)
  Receive Date: 20040217
  Receipt Date: 20040205
  Transmission Date: 20041129
  Serious: Yes (Disabling)
  Sender: FDA-Public Use
  Company Number: 03P-167-0245271-00

PATIENT
  Age: 64 Year
  Sex: Female

DRUGS (6)
  1. VALPROATE SODIUM [Suspect]
     Indication: EPILEPSY
     Dosage: 400 MG, 2 IN 1 D, ORAL
     Route: 048
     Dates: start: 20030101
  2. METFORMIN HCL [Concomitant]
  3. CAPTOPRIL [Concomitant]
  4. ASPIRIN DISPERSIBLE [Concomitant]
  5. AMLODIPINE [Concomitant]
  6. AMITRIPTYLINE HCL [Concomitant]

REACTIONS (4)
  - DIABETIC NEUROPATHY [None]
  - HYPOAESTHESIA [None]
  - PARAESTHESIA [None]
  - RESTLESS LEGS SYNDROME [None]
